FAERS Safety Report 8050469-9 (Version None)
Quarter: 2011Q4

REPORT INFORMATION
  Report Type: 
  Country: None (occurrence: None)
  Receive Date: 20111212
  Receipt Date: 20110915
  Transmission Date: 20120403
  Serious: Yes (Other)
  Sender: FDA-Public Use
  Company Number: PHHY2010US22647

PATIENT
  Age: 31 Year
  Sex: Female

DRUGS (5)
  1. GABAPENTIN [Concomitant]
  2. EXTAVIA [Suspect]
     Indication: MULTIPLE SCLEROSIS
     Dosage: 0.25 MG, QOD, SUBCUTANEOUS 0.125 MG, QOD 0.25 MG, QOD, SUBCUTANEOUS
     Route: 058
     Dates: start: 20100330
  3. EXTAVIA [Suspect]
     Indication: MULTIPLE SCLEROSIS
     Dosage: 0.25 MG, QOD, SUBCUTANEOUS 0.125 MG, QOD 0.25 MG, QOD, SUBCUTANEOUS
     Route: 058
     Dates: start: 20100303
  4. IBUPROFEN (IBUPROFEN) [Concomitant]
  5. ORAL CONTRACEPTIVE NOS (ORAL CONTRACEPTIVE NOS) [Concomitant]

REACTIONS (9)
  - INJECTION SITE ERYTHEMA [None]
  - MUSCLE TIGHTNESS [None]
  - CHILLS [None]
  - HYPOAESTHESIA [None]
  - MULTIPLE SCLEROSIS RELAPSE [None]
  - CENTRAL NERVOUS SYSTEM LESION [None]
  - CHEST DISCOMFORT [None]
  - INJECTION SITE PAIN [None]
  - INJECTION SITE HAEMATOMA [None]
